FAERS Safety Report 13393408 (Version 1)
Quarter: 2017Q1

REPORT INFORMATION
  Report Type: Spontaneous
  Country: FR (occurrence: FR)
  Receive Date: 20170331
  Receipt Date: 20170331
  Transmission Date: 20170429
  Serious: Yes (Hospitalization)
  Sender: FDA-Public Use
  Company Number: FR-SA-2017SA030523

PATIENT
  Age: 5 Year
  Sex: Female
  Weight: 16 kg

DRUGS (2)
  1. POLARAMINE [Concomitant]
     Active Substance: DEXCHLORPHENIRAMINE MALEATE
     Indication: PREMEDICATION
     Route: 042
  2. CEREZYME [Suspect]
     Active Substance: IMIGLUCERASE
     Indication: GAUCHER^S DISEASE TYPE I
     Route: 041
     Dates: start: 20161125

REACTIONS (9)
  - Respiratory rate increased [Not Recovered/Not Resolved]
  - Tachycardia [Recovered/Resolved]
  - Pyrexia [Recovered/Resolved]
  - Pallor [Unknown]
  - Chills [Recovered/Resolved]
  - Skin discolouration [Recovering/Resolving]
  - Malaise [Recovered/Resolved]
  - Hypotension [Recovered/Resolved]
  - Vascular resistance systemic [Unknown]

NARRATIVE: CASE EVENT DATE: 20170217
